FAERS Safety Report 5690207-8 (Version None)
Quarter: 2008Q2

REPORT INFORMATION
  Report Type: 
  Country: None (occurrence: None)
  Receive Date: 20080401
  Receipt Date: 20080325
  Transmission Date: 20081010
  Serious: Yes (Disabling)
  Sender: FDA-Public Use
  Company Number: GB-RB-000599-08

PATIENT
  Age: 49 Year

DRUGS (4)
  1. BUPRENORPHINE HYDROCHLORIDE [Suspect]
     Route: 065
     Dates: start: 20080205, end: 20080207
  2. CITALOPRAM [Concomitant]
     Indication: DRUG USE FOR UNKNOWN INDICATION
     Route: 065
     Dates: start: 20060101
  3. GABAPENTIN [Concomitant]
     Indication: DRUG USE FOR UNKNOWN INDICATION
     Route: 065
     Dates: start: 20060101, end: 20080201
  4. TIZANIDINE HCL [Concomitant]
     Indication: DRUG USE FOR UNKNOWN INDICATION
     Dosage: DAILY.
     Route: 065
     Dates: start: 20060101

REACTIONS (10)
  - DIZZINESS [None]
  - EAR PAIN [None]
  - HEADACHE [None]
  - HEART RATE DECREASED [None]
  - HYPERHIDROSIS [None]
  - IMMOBILE [None]
  - NAUSEA [None]
  - TINNITUS [None]
  - URINARY RETENTION [None]
  - VOMITING [None]
